FAERS Safety Report 20132275 (Version 1)
Quarter: 2021Q4

REPORT INFORMATION
  Report Type: Spontaneous
  Country: US (occurrence: US)
  Receive Date: 20211130
  Receipt Date: 20211130
  Transmission Date: 20220303
  Serious: No
  Sender: FDA-Public Use
  Company Number: US-TEVA-2021-US-1980133

PATIENT
  Age: 36 Year
  Sex: Female
  Weight: 61.23 kg

DRUGS (4)
  1. AJOVY [Suspect]
     Active Substance: FREMANEZUMAB-VFRM
     Indication: Migraine
     Dosage: 225/1.5 MG/ML
     Route: 065
     Dates: start: 2019
  2. AJOVY [Suspect]
     Active Substance: FREMANEZUMAB-VFRM
  3. GABAPENTIN [Concomitant]
     Active Substance: GABAPENTIN
     Indication: Migraine
     Route: 065
  4. TIZANIDINE [Concomitant]
     Active Substance: TIZANIDINE
     Indication: Migraine
     Route: 065

REACTIONS (4)
  - Intentional dose omission [Unknown]
  - Withdrawal syndrome [Unknown]
  - Pain [Unknown]
  - Product tampering [Unknown]

NARRATIVE: CASE EVENT DATE: 20211115
